FAERS Safety Report 23339409 (Version 1)
Quarter: 2023Q4

REPORT INFORMATION
  Report Type: Spontaneous
  Country: RS (occurrence: RS)
  Receive Date: 20231226
  Receipt Date: 20231226
  Transmission Date: 20240110
  Serious: Yes (Other)
  Sender: FDA-Public Use
  Company Number: RS-TEVA-VS-3138038

PATIENT

DRUGS (6)
  1. ETOPOSIDE [Suspect]
     Active Substance: ETOPOSIDE
     Indication: Diffuse large B-cell lymphoma
     Dosage: RECEIVED THIRD CYCLE OF DA-EPOCH-R CHEMOTHERAPY
     Route: 042
  2. VINCRISTINE [Suspect]
     Active Substance: VINCRISTINE
     Indication: Diffuse large B-cell lymphoma
     Dosage: RECEIVED THIRD CYCLE OF DA-EPOCH-R CHEMOTHERAPY
     Route: 042
  3. DOXORUBICIN [Suspect]
     Active Substance: DOXORUBICIN
     Indication: Diffuse large B-cell lymphoma
     Dosage: RECEIVED THIRD CYCLE OF DA-EPOCH-R CHEMOTHERAPY
     Route: 042
  4. PREDNISONE [Suspect]
     Active Substance: PREDNISONE
     Indication: Diffuse large B-cell lymphoma
     Dosage: RECEIVED THIRD CYCLE OF DA-EPOCH-R CHEMOTHERAPY
     Route: 042
  5. CYCLOPHOSPHAMIDE [Suspect]
     Active Substance: CYCLOPHOSPHAMIDE
     Indication: Diffuse large B-cell lymphoma
     Dosage: RECEIVED THIRD CYCLE OF DA-EPOCH-R CHEMOTHERAPY
     Route: 042
  6. RITUXIMAB [Suspect]
     Active Substance: RITUXIMAB
     Indication: Diffuse large B-cell lymphoma
     Dosage: RECEIVED THIRD CYCLE OF DA-EPOCH-R CHEMOTHERAPY
     Route: 042

REACTIONS (2)
  - Embolism venous [Recovering/Resolving]
  - Ischaemic stroke [Recovering/Resolving]
